FAERS Safety Report 5007643-5 (Version None)
Quarter: 2006Q2

REPORT INFORMATION
  Report Type: 
  Country: None (occurrence: None)
  Receive Date: 20060522
  Receipt Date: 20060511
  Transmission Date: 20061013
  Serious: Yes (Hospitalization)
  Sender: FDA-Public Use
  Company Number: PHBS2006US07086

PATIENT
  Age: 65 Year
  Sex: Male

DRUGS (4)
  1. CYCLOSPORINE [Suspect]
     Indication: LIVER TRANSPLANT
     Dosage: 50 MG/D
     Route: 065
  2. CYCLOSPORINE [Suspect]
     Dosage: 25 MG/D
     Route: 065
  3. MYCOPHENOLATE MOFETIL [Concomitant]
     Indication: LIVER TRANSPLANT
     Dosage: 1 G/D
     Route: 065
  4. SIROLIMUS [Suspect]
     Indication: LIVER TRANSPLANT
     Dosage: 1 MG/D
     Route: 065

REACTIONS (23)
  - ACTIVATED PARTIAL THROMBOPLASTIN TIME PROLONGED [None]
  - BLOOD ALKALINE PHOSPHATASE INCREASED [None]
  - BLOOD CREATININE INCREASED [None]
  - DRUG TOXICITY [None]
  - FALL [None]
  - GASTROINTESTINAL HAEMORRHAGE [None]
  - GLOMERULONEPHRITIS PROLIFERATIVE [None]
  - HAEMATURIA [None]
  - HAEMODIALYSIS [None]
  - HAEMOGLOBIN DECREASED [None]
  - HENOCH-SCHONLEIN PURPURA [None]
  - HYPERPROTEINAEMIA [None]
  - IMPAIRED HEALING [None]
  - PAIN IN EXTREMITY [None]
  - PANCYTOPENIA [None]
  - PLATELET COUNT DECREASED [None]
  - PROTEINURIA [None]
  - PROTHROMBIN TIME PROLONGED [None]
  - PURPURA [None]
  - RED BLOOD CELL SEDIMENTATION RATE INCREASED [None]
  - RENAL IMPAIRMENT [None]
  - RHEUMATOID FACTOR INCREASED [None]
  - WHITE BLOOD CELL COUNT DECREASED [None]
